FAERS Safety Report 8312848-1 (Version None)
Quarter: 2012Q2

REPORT INFORMATION
  Report Type: 
  Country: None (occurrence: None)
  Receive Date: 20120426
  Receipt Date: 20120420
  Transmission Date: 20120825
  Serious: Yes (Death)
  Sender: FDA-Public Use
  Company Number: US-PFIZER INC-2012099136

PATIENT
  Sex: Female

DRUGS (1)
  1. CAMPTOSAR [Suspect]
     Indication: SMALL INTESTINE CARCINOMA
     Dosage: UNK
     Dates: start: 20110620, end: 20110818

REACTIONS (2)
  - SMALL INTESTINE CARCINOMA [None]
  - DISEASE PROGRESSION [None]
